FAERS Safety Report 11216383 (Version 1)
Quarter: 2015Q2

REPORT INFORMATION
  Report Type: Report from Study
  Country: GB (occurrence: GB)
  Receive Date: 20150624
  Receipt Date: 20150624
  Transmission Date: 20150821
  Serious: Yes (Hospitalization)
  Sender: FDA-Public Use
  Company Number: GB-ASTRAZENECA-2015SE50550

PATIENT
  Age: 54 Year
  Sex: Female

DRUGS (17)
  1. AZOPT [Concomitant]
     Active Substance: BRINZOLAMIDE
     Dosage: 2 DROPS TWICE DAILY
     Route: 047
     Dates: start: 201412
  2. PANTOPRAZOLE SODIUM. [Concomitant]
     Active Substance: PANTOPRAZOLE SODIUM
     Route: 048
     Dates: start: 20150212
  3. VITAMIN D [Concomitant]
     Active Substance: CHOLECALCIFEROL
     Route: 048
     Dates: start: 201412
  4. NAPROXEN. [Concomitant]
     Active Substance: NAPROXEN
     Route: 048
     Dates: start: 20150221
  5. TANTUM VERDE [Concomitant]
     Active Substance: BENZYDAMINE HYDROCHLORIDE
     Indication: MUCOSAL INFLAMMATION
     Dosage: 1 PIPETTE TWICE DAILY
     Route: 048
     Dates: start: 20150502
  6. VAGISAN [Concomitant]
     Indication: VAGINAL INFECTION
     Dosage: THREE TIMES
     Route: 061
     Dates: start: 20150515
  7. XGEVA [Concomitant]
     Active Substance: DENOSUMAB
     Route: 058
     Dates: start: 20150316
  8. FULVESTRANT [Suspect]
     Active Substance: FULVESTRANT
     Indication: OESTROGEN RECEPTOR POSITIVE BREAST CANCER
     Dosage: 500 MG
     Route: 030
     Dates: start: 20150316
  9. GABAPENTIN. [Concomitant]
     Active Substance: GABAPENTIN
     Route: 048
     Dates: start: 20150309
  10. HERBAL NOS [Concomitant]
     Active Substance: HERBALS
     Indication: DYSPEPSIA
     Dosage: 20 DROPS THREE TIMES
     Route: 048
     Dates: start: 20150316
  11. BISOPROLOL [Concomitant]
     Active Substance: BISOPROLOL
     Route: 048
     Dates: start: 2005
  12. OXYCODON [Concomitant]
     Active Substance: OXYCODONE
     Route: 048
     Dates: start: 20150309
  13. NOVAMINSULFON [Concomitant]
     Active Substance: METAMIZOLE
     Indication: BONE PAIN
     Route: 048
     Dates: start: 20150316
  14. AZD2014 [Suspect]
     Active Substance: INVESTIGATIONAL PRODUCT
     Indication: OESTROGEN RECEPTOR POSITIVE BREAST CANCER
     Dosage: 125 MG
     Route: 048
     Dates: start: 20150316
  15. JODID [Concomitant]
     Active Substance: IODINE
     Route: 048
     Dates: start: 1995
  16. TAVOR [Concomitant]
     Active Substance: LORAZEPAM
     Route: 048
     Dates: start: 201412
  17. CLEXANE [Concomitant]
     Active Substance: ENOXAPARIN SODIUM
     Route: 058
     Dates: start: 20150316

REACTIONS (1)
  - Psoriasis [Recovered/Resolved]

NARRATIVE: CASE EVENT DATE: 20150520
